FAERS Safety Report 16070076 (Version 2)
Quarter: 2019Q2

REPORT INFORMATION
  Report Type: Spontaneous
  Country: JP (occurrence: JP)
  Receive Date: 20190314
  Receipt Date: 20190420
  Transmission Date: 20190711
  Serious: Yes (Other)
  Sender: FDA-Public Use
  Company Number: JP-ABBVIE-19P-087-2704053-00

PATIENT
  Age: 14 Year
  Sex: Male
  Weight: 46.6 kg

DRUGS (6)
  1. LEUPLIN [Suspect]
     Active Substance: LEUPROLIDE ACETATE
     Indication: PRECOCIOUS PUBERTY
     Dosage: 2.6 MILLIGRAM
     Route: 058
     Dates: start: 20190126, end: 20190126
  2. PRIMOBOLAN                         /00044803/ [Concomitant]
     Dosage: 1 DOSAGE FORM
     Route: 058
     Dates: start: 20170826, end: 20190326
  3. LEUPLIN [Suspect]
     Active Substance: LEUPROLIDE ACETATE
     Dosage: 3 MILLIGRAM
     Route: 058
     Dates: start: 20190223, end: 20190223
  4. PRIMOBOLAN                         /00044803/ [Concomitant]
     Indication: BODY HEIGHT BELOW NORMAL
     Dosage: 0.5 DOSAGE FORM
     Route: 058
     Dates: start: 20170701, end: 20170729
  5. LEUPLIN [Suspect]
     Active Substance: LEUPROLIDE ACETATE
     Indication: PRECOCIOUS PUBERTY
     Dosage: 1.88 MILLIGRAM, Q4WEEKS
     Route: 058
     Dates: start: 20170605, end: 20181222
  6. GROWJECT [Concomitant]
     Active Substance: SOMATROPIN
     Indication: BODY HEIGHT BELOW NORMAL
     Dosage: 1.5 MILLIGRAM
     Route: 058
     Dates: start: 20170605, end: 20190223

REACTIONS (3)
  - Urticaria [Unknown]
  - Anaphylactic reaction [Recovered/Resolved]
  - Depressed level of consciousness [Recovering/Resolving]

NARRATIVE: CASE EVENT DATE: 20190223
